FAERS Safety Report 24097968 (Version 2)
Quarter: 2024Q3

REPORT INFORMATION
  Report Type: Spontaneous
  Country: RU (occurrence: RU)
  Receive Date: 20240716
  Receipt Date: 20240722
  Transmission Date: 20241017
  Serious: No
  Sender: AMGEN
  Company Number: RU-AMGEN-RUSSP2024136429

PATIENT
  Age: 47 Year
  Sex: Male

DRUGS (1)
  1. APREMILAST [Suspect]
     Active Substance: APREMILAST
     Indication: Psoriatic arthropathy
     Dosage: 30 MILLIGRAM, BID
     Route: 048

REACTIONS (1)
  - Psoriasis [Unknown]
